FAERS Safety Report 15200747 (Version 2)
Quarter: 2019Q1

REPORT INFORMATION
  Report Type: Spontaneous
  Country: US (occurrence: US)
  Receive Date: 20180726
  Receipt Date: 20190308
  Transmission Date: 20190417
  Serious: Yes (Hospitalization, Other)
  Sender: FDA-Public Use
  Company Number: US-SA-2018SA198156

PATIENT
  Age: 54 Year
  Sex: Female

DRUGS (2)
  1. AUBAGIO [Suspect]
     Active Substance: TERIFLUNOMIDE
     Indication: MULTIPLE SCLEROSIS
     Dosage: 1 DF, QD
     Route: 048
     Dates: start: 2017, end: 201807
  2. AMPYRA [Concomitant]
     Active Substance: DALFAMPRIDINE

REACTIONS (13)
  - Multiple sclerosis relapse [Unknown]
  - Fatigue [Unknown]
  - Pain [Unknown]
  - Multiple sclerosis [Unknown]
  - Insomnia [Unknown]
  - Sleep disorder [Unknown]
  - Malaise [Unknown]
  - Headache [Unknown]
  - Peroneal nerve palsy [Unknown]
  - Impaired driving ability [Unknown]
  - Fall [Unknown]
  - Gait disturbance [Unknown]
  - Ankle fracture [Unknown]

NARRATIVE: CASE EVENT DATE: 20190223
